FAERS Safety Report 5693622-1 (Version None)
Quarter: 2008Q2

REPORT INFORMATION
  Report Type: 
  Country: None (occurrence: None)
  Receive Date: 20080328
  Receipt Date: 20071004
  Transmission Date: 20081010
  Serious: Yes (Other)
  Sender: FDA-Public Use
  Company Number: US-WYE-H00557307

PATIENT
  Age: 68 Year
  Sex: Female
  Weight: 89.44 kg

DRUGS (4)
  1. PROTONIX [Suspect]
     Indication: GASTROOESOPHAGEAL REFLUX DISEASE
     Dosage: 40 MG 2X PER 1 DAY, ORAL
     Route: 048
     Dates: start: 20040101
  2. PROPANOLOL (PROPANOLOL) [Concomitant]
  3. COUMADIN [Concomitant]
  4. HYZAAR [Concomitant]

REACTIONS (6)
  - DRUG INEFFECTIVE [None]
  - EATING DISORDER [None]
  - MEDICATION ERROR [None]
  - NAUSEA [None]
  - PHARMACEUTICAL PRODUCT COMPLAINT [None]
  - WEIGHT DECREASED [None]
